FAERS Safety Report 10366014 (Version 1)
Quarter: 2014Q3

REPORT INFORMATION
  Report Type: Spontaneous
  Country: US (occurrence: None)
  Receive Date: 20140804
  Receipt Date: 20140804
  Transmission Date: 20150326
  Serious: Yes (Other)
  Sender: FDA-Public Use
  Company Number: None

PATIENT
  Age: 54 Year
  Sex: Female
  Weight: 61.24 kg

DRUGS (1)
  1. CLONAZEPAM 0.5 MG TEVA [Suspect]
     Active Substance: CLONAZEPAM
     Indication: POST-TRAUMATIC STRESS DISORDER
     Dosage: 2 PILLS PER DAY TWICE DAILY TAKEN BY MOUTH
     Route: 048

REACTIONS (11)
  - Panic reaction [None]
  - Insomnia [None]
  - Mental impairment [None]
  - Memory impairment [None]
  - Palpitations [None]
  - Depression [None]
  - Psychotic disorder [None]
  - Paranoia [None]
  - Anger [None]
  - Hypophagia [None]
  - Drug withdrawal syndrome [None]

NARRATIVE: CASE EVENT DATE: 20130913
